FAERS Safety Report 8537541 (Version 4)
Quarter: 2013Q3

REPORT INFORMATION
  Report Type: Spontaneous
  Country: US (occurrence: None)
  Receive Date: 20120419
  Receipt Date: 20130815
  Transmission Date: 20140515
  Serious: Yes (Hospitalization, Other)
  Sender: FDA-Public Use
  Company Number: ADR-2008-5966

PATIENT
  Age: 60 Year
  Sex: Female

DRUGS (4)
  1. BACLOFEN [Suspect]
     Indication: PAIN
     Dosage: UNK MCG, DAILY
  2. BACLOFEN [Suspect]
     Indication: PAIN
     Dosage: UNK MCG, DAILY
  3. BUPIVICAINE [Concomitant]
  4. MORPHINE SULFATE [Concomitant]

REACTIONS (20)
  - Arthritis infective [None]
  - Headache [None]
  - Vision blurred [None]
  - Burning sensation [None]
  - Pain in extremity [None]
  - Syncope [None]
  - Thrombosis [None]
  - Coma [None]
  - Neuroma [None]
  - Abdominal pain [None]
  - Device dislocation [None]
  - Functional gastrointestinal disorder [None]
  - Tongue discolouration [None]
  - Glossodynia [None]
  - Infected skin ulcer [None]
  - Device malfunction [None]
  - Ileus paralytic [None]
  - Deep vein thrombosis [None]
  - Implant site pain [None]
  - Pain [None]
